FAERS Safety Report 8405967-2 (Version None)
Quarter: 2012Q2

REPORT INFORMATION
  Report Type: 
  Country: None (occurrence: None)
  Receive Date: 20120323
  Receipt Date: 20101231
  Transmission Date: 20120825
  Serious: Yes (Hospitalization, Other)
  Sender: FDA-Public Use
  Company Number: 163-21880-10070574

PATIENT
  Age: 71 Year
  Sex: Male
  Weight: 71.4869 kg

DRUGS (16)
  1. ZITHROMAX [Concomitant]
  2. SOLU-MEDROL [Concomitant]
  3. FAMOTIDINE [Concomitant]
  4. COMPAZINE [Concomitant]
  5. VELCADE [Suspect]
     Indication: MULTIPLE MYELOMA
     Dosage: 2.5 MG
     Dates: start: 20100511
  6. ATROVENT [Concomitant]
  7. ALLOPURINOL [Concomitant]
  8. ALPRAZOLAM [Concomitant]
  9. ALBUTEROL NEBULIZER (SALBUTAMOL) [Concomitant]
  10. FUROSEMIDE [Concomitant]
  11. LISINOPRIL [Concomitant]
  12. REVLIMID [Suspect]
     Indication: MULTIPLE MYELOMA
     Dosage: 25 MG, WEEKLY, PO
     Route: 048
     Dates: start: 20100201, end: 20100522
  13. XANAX [Concomitant]
  14. PREDNISONE TAB [Concomitant]
  15. DECADRON [Concomitant]
  16. LORATADINE [Concomitant]

REACTIONS (3)
  - CHRONIC OBSTRUCTIVE PULMONARY DISEASE [None]
  - DEEP VEIN THROMBOSIS [None]
  - PNEUMONIA [None]
